FAERS Safety Report 4444273-8 (Version None)
Quarter: 2004Q3

REPORT INFORMATION
  Report Type: 
  Country: None (occurrence: None)
  Receive Date: 20040812
  Receipt Date: 20040401
  Transmission Date: 20050211
  Serious: Yes (Hospitalization, Other)
  Sender: FDA-Public Use
  Company Number: USA021022441

PATIENT
  Age: 67 Year
  Sex: Male
  Weight: 76 kg

DRUGS (4)
  1. HUMULIN N [Suspect]
     Indication: DIABETES MELLITUS
     Dosage: 26 U/DAY
  2. HUMALOG [Suspect]
     Indication: DIABETES MELLITUS
  3. HUMULIN R [Suspect]
     Indication: DIABETES MELLITUS
     Dosage: 6 U/1 IN THE MORNING
  4. LENTE ILETIN (BEEF-PORK) INSULIN ZINC [Suspect]
     Indication: DIABETES MELLITUS
     Dates: start: 19730101

REACTIONS (8)
  - ASTHENIA [None]
  - BLOOD GLUCOSE INCREASED [None]
  - CORONARY ARTERY OCCLUSION [None]
  - INJECTION SITE INFECTION [None]
  - MEMORY IMPAIRMENT [None]
  - OSTEOMYELITIS [None]
  - STAPHYLOCOCCAL INFECTION [None]
  - WEIGHT DECREASED [None]
